FAERS Safety Report 14174974 (Version 1)
Quarter: 2017Q4

REPORT INFORMATION
  Report Type: Spontaneous
  Country: US (occurrence: US)
  Receive Date: 20171109
  Receipt Date: 20171109
  Transmission Date: 20180321
  Serious: Yes (Hospitalization, Other)
  Sender: FDA-Public Use
  Company Number: US-ASTRAZENECA-2017SF13153

PATIENT
  Age: 67 Year
  Sex: Female

DRUGS (1)
  1. MOVANTIK [Suspect]
     Active Substance: NALOXEGOL OXALATE
     Indication: CONSTIPATION
     Dosage: 25.0MG UNKNOWN
     Route: 048
     Dates: start: 20171022

REACTIONS (5)
  - Diarrhoea [Recovered/Resolved]
  - Vomiting [Recovered/Resolved]
  - Muscle spasms [Recovered/Resolved]
  - Abdominal pain upper [Not Recovered/Not Resolved]
  - Haematemesis [Recovered/Resolved]
